FAERS Safety Report 12927599 (Version 1)
Quarter: 2016Q4

REPORT INFORMATION
  Report Type: Spontaneous
  Country: JP (occurrence: JP)
  Receive Date: 20161109
  Receipt Date: 20161109
  Transmission Date: 20170207
  Serious: Yes (Other)
  Sender: FDA-Public Use
  Company Number: JP-ASTRAZENECA-2016SF08934

PATIENT
  Age: 62 Year
  Sex: Female

DRUGS (4)
  1. PEMETREXED [Concomitant]
     Active Substance: PEMETREXED
     Indication: LUNG ADENOCARCINOMA
     Dosage: DOSE UNKNOWN
     Route: 065
     Dates: start: 201509
  2. IRESSA [Suspect]
     Active Substance: GEFITINIB
     Indication: LUNG ADENOCARCINOMA
     Route: 048
     Dates: start: 201205
  3. CARBOPLATIN. [Concomitant]
     Active Substance: CARBOPLATIN
     Indication: LUNG ADENOCARCINOMA
     Dosage: DOSE UNKNOWN
     Route: 065
     Dates: start: 201509
  4. TAGRISSO [Concomitant]
     Active Substance: OSIMERTINIB
     Route: 048

REACTIONS (5)
  - Paronychia [Recovered/Resolved]
  - Metastases to bone [Unknown]
  - Pleural effusion [Unknown]
  - Malignant neoplasm progression [Unknown]
  - Metastases to central nervous system [Unknown]
